FAERS Safety Report 5359366-0 (Version None)
Quarter: 2007Q2

REPORT INFORMATION
  Report Type: 
  Country: None (occurrence: None)
  Receive Date: 20070615
  Receipt Date: 20070604
  Transmission Date: 20071010
  Serious: Yes (Hospitalization)
  Sender: FDA-Public Use
  Company Number: FR-PFIZER INC-2006086223

PATIENT
  Age: 12 Year
  Sex: Female

DRUGS (6)
  1. FOSPHENYTOIN SODIUM [Suspect]
     Route: 042
     Dates: start: 20060620, end: 20060621
  2. DEPAKENE [Suspect]
     Route: 048
  3. DIAZEPAM [Concomitant]
     Dosage: DAILY DOSE:5MG
  4. KEPPRA [Concomitant]
  5. CALCIFORTE [Concomitant]
  6. SUCRALFATE [Concomitant]

REACTIONS (3)
  - HAEMOGLOBIN DECREASED [None]
  - LEUKOPENIA [None]
  - THROMBOCYTOPENIA [None]
